FAERS Safety Report 15534018 (Version 1)
Quarter: 2018Q4

REPORT INFORMATION
  Report Type: Spontaneous
  Country: US (occurrence: US)
  Receive Date: 20181019
  Receipt Date: 20181019
  Transmission Date: 20190205
  Serious: No
  Sender: FDA-Public Use
  Company Number: US-BAYER-2018-194380

PATIENT
  Age: 71 Year
  Sex: Female
  Weight: 49.89 kg

DRUGS (1)
  1. ZEGERID OTC CAPSULES [Suspect]
     Active Substance: OMEPRAZOLE\SODIUM BICARBONATE
     Dosage: UNK
     Route: 048

REACTIONS (4)
  - Product prescribing issue [Unknown]
  - Product quality issue [None]
  - Poor quality product administered [None]
  - Product use issue [None]
